FAERS Safety Report 6894820-1 (Version None)
Quarter: 2010Q3

REPORT INFORMATION
  Report Type: 
  Country: None (occurrence: None)
  Receive Date: 20100728
  Receipt Date: 20100720
  Transmission Date: 20110219
  Serious: Yes (Hospitalization, Disabling)
  Sender: FDA-Public Use
  Company Number: 2010JP001923

PATIENT
  Age: 78 Year
  Sex: Male
  Weight: 53.2 kg

DRUGS (3)
  1. PROGRAF [Suspect]
     Indication: RHEUMATOID ARTHRITIS
     Dosage: 3 MG, UID/QD, ORAL
     Route: 048
     Dates: start: 20061211, end: 20100203
  2. MOBIC [Suspect]
     Indication: RHEUMATOID ARTHRITIS
     Dosage: 10 MG, UID/QD, ORAL
     Route: 048
     Dates: end: 20100212
  3. PROCYLIN (BERAPROST SODIUM) PER ORAL NOS [Suspect]
     Dosage: 40 UG, BID, ORAL
     Route: 048
     Dates: end: 20100212

REACTIONS (3)
  - NEPHROTIC SYNDROME [None]
  - RENAL IMPAIRMENT [None]
  - TUBULOINTERSTITIAL NEPHRITIS [None]
